FAERS Safety Report 7782307-3 (Version None)
Quarter: 2011Q3

REPORT INFORMATION
  Report Type: 
  Country: None (occurrence: None)
  Receive Date: 20110927
  Receipt Date: 20110914
  Transmission Date: 20111222
  Serious: Yes (Other)
  Sender: FDA-Public Use
  Company Number: JP-ELI_LILLY_AND_COMPANY-JP201109000881

PATIENT
  Sex: Female

DRUGS (5)
  1. ARICEPT [Concomitant]
     Dosage: UNK
  2. SLOWHEIM [Concomitant]
     Dosage: UNK
  3. CYMBALTA [Suspect]
     Indication: DEPRESSION
     Dosage: 20 MG, QD
     Route: 048
     Dates: start: 20110701, end: 20110801
  4. SULPIRIDE [Concomitant]
     Dosage: UNK
  5. CYMBALTA [Suspect]
     Dosage: 40 MG, QD
     Route: 048
     Dates: start: 20110801, end: 20110825

REACTIONS (1)
  - CONVULSION [None]
